FAERS Safety Report 8425748 (Version 5)
Quarter: 2013Q4

REPORT INFORMATION
  Report Type: Report from Study
  Country: CA (occurrence: CA)
  Receive Date: 20120224
  Receipt Date: 20131119
  Transmission Date: 20140711
  Serious: Yes (Other)
  Sender: FDA-Public Use
  Company Number: PHHY2011CA112319

PATIENT
  Age: 56 Year
  Sex: Female

DRUGS (5)
  1. SANDOSTATIN LAR [Suspect]
     Indication: ACROMEGALY
     Dosage: 30 MG, ONCE A MONTH
     Route: 030
     Dates: start: 20110119
  2. SANDOSTATIN LAR [Suspect]
     Dosage: 20 MG, EVERY 4 WEEKS
     Route: 030
  3. SANDOSTATIN LAR [Suspect]
     Dosage: 20 MG, EVERY 3 WEEKS
     Route: 030
  4. SANDOSTATIN [Suspect]
     Indication: ACROMEGALY
     Dosage: 10 UG, UNK
     Route: 058
  5. SANDOSTATIN [Suspect]
     Dosage: 200 UG,4 TIMES A WEEK
     Route: 058

REACTIONS (11)
  - Vertigo [Unknown]
  - Gait disturbance [Unknown]
  - Hypoaesthesia [Unknown]
  - Hyperhidrosis [Unknown]
  - Balance disorder [Unknown]
  - Contusion [Unknown]
  - Blood pressure increased [Unknown]
  - Fatigue [Unknown]
  - Headache [Unknown]
  - Nausea [Unknown]
  - Injection site pain [Unknown]
